FAERS Safety Report 4501691-7 (Version None)
Quarter: 2004Q4

REPORT INFORMATION
  Report Type: 
  Country: None (occurrence: None)
  Receive Date: 20041115
  Receipt Date: 20041115
  Transmission Date: 20050328
  Serious: Yes (Life-Threatening)
  Sender: FDA-Public Use
  Company Number: None

PATIENT
  Age: 56 Year
  Sex: Male
  Weight: 77 kg

DRUGS (2)
  1. FOSPHENYTOIN SODIUM [Suspect]
     Dosage: 1 GM IV
     Route: 042
     Dates: start: 20041016
  2. METHADONE [Suspect]
     Dosage: 80 MG Q4 H PO
     Route: 048

REACTIONS (3)
  - DRUG INTERACTION [None]
  - TORSADE DE POINTES [None]
  - VENTRICULAR FIBRILLATION [None]
